FAERS Safety Report 9967291 (Version 2)
Quarter: 2014Q1

REPORT INFORMATION
  Report Type: Report from Study
  Country: US (occurrence: US)
  Receive Date: 20140305
  Receipt Date: 20140305
  Transmission Date: 20141002
  Serious: No
  Sender: FDA-Public Use
  Company Number: US-ABBVIE-13P-163-1107191-00

PATIENT
  Age: 35 Year
  Sex: Female
  Weight: 120.31 kg

DRUGS (16)
  1. HUMIRA [Suspect]
     Indication: COLITIS ULCERATIVE
     Dosage: ONE DOSE
     Route: 058
     Dates: start: 201306, end: 201306
  2. HUMIRA [Suspect]
     Dosage: 2 WEEK LATER: ONE DOSE
     Route: 058
  3. HUMIRA [Suspect]
     Dates: start: 2013
  4. LIBRAX [Concomitant]
     Indication: ABDOMINAL RIGIDITY
  5. POTASSIUM [Concomitant]
     Indication: PRODUCT USED FOR UNKNOWN INDICATION
  6. PROMETHAZINE [Concomitant]
     Indication: NAUSEA
  7. CYMBALTA [Concomitant]
     Indication: ANXIETY
  8. LUNESTA [Concomitant]
     Indication: INSOMNIA
     Dosage: BED TIME
  9. CYCLOBENZAPRINE [Concomitant]
     Indication: PRODUCT USED FOR UNKNOWN INDICATION
  10. DIAZEPAM [Concomitant]
     Indication: PRODUCT USED FOR UNKNOWN INDICATION
  11. 6-MP [Concomitant]
     Indication: PRODUCT USED FOR UNKNOWN INDICATION
  12. TOPAMAX [Concomitant]
     Indication: HYPERTENSION
  13. OMEPRAZOLE [Concomitant]
     Indication: GASTRIC DISORDER
  14. WELCHOL [Concomitant]
     Indication: FREQUENT BOWEL MOVEMENTS
  15. LORTAB [Concomitant]
     Indication: PAIN
  16. PRISTIQ [Concomitant]
     Indication: FIBROMYALGIA
     Dates: start: 20130826

REACTIONS (18)
  - Mouth ulceration [Not Recovered/Not Resolved]
  - Mouth ulceration [Not Recovered/Not Resolved]
  - Fatigue [Not Recovered/Not Resolved]
  - Sinus disorder [Not Recovered/Not Resolved]
  - Urinary tract infection [Not Recovered/Not Resolved]
  - Migraine [Not Recovered/Not Resolved]
  - Nausea [Not Recovered/Not Resolved]
  - Diarrhoea [Not Recovered/Not Resolved]
  - Abdominal pain [Not Recovered/Not Resolved]
  - Pyrexia [Not Recovered/Not Resolved]
  - Cough [Not Recovered/Not Resolved]
  - Wheezing [Not Recovered/Not Resolved]
  - Dysphonia [Not Recovered/Not Resolved]
  - Dyspnoea [Not Recovered/Not Resolved]
  - Headache [Not Recovered/Not Resolved]
  - Bronchitis [Not Recovered/Not Resolved]
  - Abdominal pain upper [Unknown]
  - Abdominal pain upper [Unknown]
